FAERS Safety Report 8253943-5 (Version None)
Quarter: 2012Q2

REPORT INFORMATION
  Report Type: 
  Country: None (occurrence: None)
  Receive Date: 20120402
  Receipt Date: 20120316
  Transmission Date: 20120825
  Serious: No
  Sender: FDA-Public Use
  Company Number: US-AMGEN-USASP2012017324

PATIENT
  Age: 50 Year
  Sex: Male

DRUGS (1)
  1. ENBREL [Suspect]
     Indication: PSORIASIS
     Dosage: 50 MG, 2 TIMES/WK
     Dates: start: 20120312

REACTIONS (8)
  - FLUSHING [None]
  - DRY MOUTH [None]
  - NAUSEA [None]
  - DRUG INEFFECTIVE [None]
  - PALPITATIONS [None]
  - PANIC ATTACK [None]
  - PAIN IN EXTREMITY [None]
  - HYPERHIDROSIS [None]
